FAERS Safety Report 8693276 (Version 2)
Quarter: 2013Q1

REPORT INFORMATION
  Report Type: Spontaneous
  Country: AU (occurrence: AU)
  Receive Date: 20120730
  Receipt Date: 20130102
  Transmission Date: 20140127
  Serious: Yes (Life-Threatening, Hospitalization)
  Sender: FDA-Public Use
  Company Number: AU-B.I. PHARMACEUTICALS,INC./RIDGEFIELD-2012-AU-01325AU

PATIENT
  Age: 69 Year
  Sex: Female
  Weight: 72 kg

DRUGS (3)
  1. PRADAXA [Suspect]
     Indication: DEEP VEIN THROMBOSIS
     Dosage: 300 MG
     Dates: start: 20110718, end: 20110825
  2. CRESTOR [Concomitant]
     Dosage: 10 MG
     Dates: start: 20080404
  3. DILANTIN [Concomitant]
     Dosage: 300 MG
     Dates: start: 2000

REACTIONS (1)
  - Deep vein thrombosis [Recovered/Resolved]
